FAERS Safety Report 4601384-1 (Version None)
Quarter: 2005Q2

REPORT INFORMATION
  Report Type: 
  Country: None (occurrence: None)
  Receive Date: 20050204
  Receipt Date: 20040728
  Transmission Date: 20051028
  Serious: Yes (Hospitalization)
  Sender: FDA-Public Use
  Company Number: 800073

PATIENT
  Age: 48 Year
  Sex: Female
  Weight: 250.7 kg

DRUGS (13)
  1. DIANEAL [Suspect]
     Indication: PERITONEAL DIALYSIS
     Dosage: 10 L; QD; INTRAPERITONEAL
     Route: 033
     Dates: start: 19980101
  2. PROTONIX [Concomitant]
  3. HECTORAL [Concomitant]
  4. BUMAX [Concomitant]
  5. LENOXIN [Concomitant]
  6. TUMS [Concomitant]
  7. RENAGEL [Concomitant]
  8. VITAMIN [Concomitant]
  9. TOPRIL [Concomitant]
  10. ALBUTEROL [Concomitant]
  11. EPOGEN [Concomitant]
  12. NPH INSULIN [Concomitant]
  13. HUMALOG [Concomitant]

REACTIONS (2)
  - PERITONITIS BACTERIAL [None]
  - STAPHYLOCOCCAL INFECTION [None]
